FAERS Safety Report 22597966 (Version 1)
Quarter: 2023Q2

REPORT INFORMATION
  Report Type: Spontaneous
  Country: US (occurrence: US)
  Receive Date: 20230614
  Receipt Date: 20230614
  Transmission Date: 20230722
  Serious: No
  Sender: FDA-Public Use
  Company Number: US-JNJFOC-20230615091

PATIENT
  Age: 49 Year
  Sex: Male

DRUGS (2)
  1. ZYRTEC [Suspect]
     Active Substance: CETIRIZINE HYDROCHLORIDE
     Indication: Eustachian tube dysfunction
     Route: 065
     Dates: start: 202305, end: 20230603
  2. ZYRTEC [Suspect]
     Active Substance: CETIRIZINE HYDROCHLORIDE
     Dosage: 20MG IN THE MORNING AND 20MG AT NIGHT
     Route: 065
     Dates: start: 20230604

REACTIONS (3)
  - Off label use [Unknown]
  - Prescribed overdose [Unknown]
  - Insomnia [Unknown]

NARRATIVE: CASE EVENT DATE: 20230501
